FAERS Safety Report 6020671-6 (Version None)
Quarter: 2008Q4

REPORT INFORMATION
  Report Type: 
  Country: None (occurrence: None)
  Receive Date: 20081226
  Receipt Date: 20081226
  Transmission Date: 20090506
  Serious: No
  Sender: FDA-Public Use
  Company Number: None

PATIENT
  Age: 28 Year
  Sex: Female
  Weight: 77 kg

DRUGS (1)
  1. VARENICLINE [Suspect]
     Dosage: 0.5 MG EVERY DAY PO
     Route: 048
     Dates: start: 20080531, end: 20080602

REACTIONS (5)
  - AGITATION [None]
  - ANGER [None]
  - CARDIAC DISORDER [None]
  - FEELING HOT [None]
  - PALPITATIONS [None]
